FAERS Safety Report 5227918-4 (Version None)
Quarter: 2007Q1

REPORT INFORMATION
  Report Type: 
  Country: None (occurrence: None)
  Receive Date: 20070202
  Receipt Date: 20070122
  Transmission Date: 20070707
  Serious: Yes (Death, Other)
  Sender: FDA-Public Use
  Company Number: US-PFIZER INC-2006061733

PATIENT
  Age: 31 Year
  Sex: Male

DRUGS (8)
  1. LYRICA [Suspect]
     Indication: BACK DISORDER
  2. METHADONE HCL [Suspect]
  3. CITALOPRAM HYDROBROMIDE [Suspect]
  4. LEXAPRO [Concomitant]
  5. PERCOCET [Concomitant]
  6. SEROQUEL [Concomitant]
  7. CELEBREX [Concomitant]
  8. MARIJUANA [Concomitant]

REACTIONS (1)
  - ACCIDENTAL OVERDOSE [None]
